FAERS Safety Report 9971787 (Version 1)
Quarter: 2014Q1

REPORT INFORMATION
  Report Type: Spontaneous
  Country: FR (occurrence: FR)
  Receive Date: 20140306
  Receipt Date: 20140306
  Transmission Date: 20141002
  Serious: Yes (Death, Hospitalization)
  Sender: FDA-Public Use
  Company Number: FR-TEVA-466206ISR

PATIENT
  Age: 68 Year
  Sex: Male

DRUGS (3)
  1. OXALIPLATIN [Suspect]
     Indication: PSEUDOMYXOMA PERITONEI
     Route: 033
  2. FOLINIC ACID [Concomitant]
     Indication: PSEUDOMYXOMA PERITONEI
     Route: 042
  3. FLUOROURACIL [Concomitant]
     Indication: PSEUDOMYXOMA PERITONEI
     Route: 042

REACTIONS (6)
  - Histiocytosis haematophagic [Fatal]
  - Thrombocytopenia [Fatal]
  - Intra-abdominal haematoma [Fatal]
  - Multi-organ failure [Fatal]
  - Septic shock [Fatal]
  - Effusion [Unknown]
